FAERS Safety Report 4494270-1 (Version None)
Quarter: 2004Q4

REPORT INFORMATION
  Report Type: 
  Country: None (occurrence: None)
  Receive Date: 20041102
  Receipt Date: 20041019
  Transmission Date: 20050328
  Serious: Yes (Other)
  Sender: FDA-Public Use
  Company Number: B0348824A

PATIENT

DRUGS (2)
  1. ADEFOVIR DIPIVOXIL (GENERIC) (ADEFOVIR DIPIVOXIL) [Suspect]
     Indication: LIVER DISORDER
  2. LAMIVUDINE (LAMIVUDINE) [Suspect]
     Indication: LIVER DISORDER
     Dosage: 100MG/PER DAY

REACTIONS (1)
  - ALANINE AMINOTRANSFERASE INCREASED [None]
